FAERS Safety Report 24612758 (Version 3)
Quarter: 2024Q4

REPORT INFORMATION
  Report Type: Spontaneous
  Country: GR (occurrence: GR)
  Receive Date: 20241113
  Receipt Date: 20241230
  Transmission Date: 20250115
  Serious: Yes (Life-Threatening, Other)
  Sender: MYLAN
  Company Number: GR-MYLANLABS-2024M1101581

PATIENT
  Age: 20 Year
  Sex: Female

DRUGS (4)
  1. VENLAFAXINE HYDROCHLORIDE [Suspect]
     Active Substance: VENLAFAXINE HYDROCHLORIDE
     Indication: Depression
     Dosage: UNK
     Route: 065
     Dates: start: 202407
  2. VENLAFAXINE HYDROCHLORIDE [Suspect]
     Active Substance: VENLAFAXINE HYDROCHLORIDE
     Dosage: 37.5 MILLIGRAM
     Route: 065
  3. XANAX [Suspect]
     Active Substance: ALPRAZOLAM
     Indication: Suicidal ideation
     Dosage: 0.25 MILLIGRAM, TID (THREE TIMES DAILY TO ASSIST WITH SUICIDAL IDEATION)
     Route: 065
  4. QUETIAPINE [Suspect]
     Active Substance: QUETIAPINE
     Indication: Sleep disorder
     Dosage: 25 MILLIGRAM, PM (25MG AT NIGHT DAILY TO HELP HER WITH SLEEP (ENZYME UNIT PER GRAM))
     Route: 065

REACTIONS (20)
  - Condition aggravated [Recovered/Resolved]
  - Suicidal behaviour [Recovered/Resolved]
  - Hallucination [Recovering/Resolving]
  - Gingival bleeding [Recovering/Resolving]
  - Body temperature increased [Recovered/Resolved]
  - Cardiovascular disorder [Recovered/Resolved]
  - Heavy menstrual bleeding [Recovered/Resolved]
  - Tension [Recovered/Resolved]
  - Agitation [Recovered/Resolved]
  - Rash pruritic [Recovering/Resolving]
  - Nausea [Recovered/Resolved]
  - Dizziness [Recovered/Resolved]
  - Sleep disorder [Recovered/Resolved]
  - Palpitations [Recovered/Resolved]
  - Hypertension [Recovered/Resolved]
  - Tinnitus [Recovered/Resolved]
  - Photosensitivity reaction [Recovered/Resolved]
  - Hyperhidrosis [Recovered/Resolved]
  - Aggression [Recovered/Resolved]
  - Vomiting [Recovered/Resolved]
